FAERS Safety Report 9430429 (Version 2)
Quarter: 2013Q3

REPORT INFORMATION
  Report Type: Report from Study
  Country: DE (occurrence: DE)
  Receive Date: 20130730
  Receipt Date: 20130805
  Transmission Date: 20140515
  Serious: Yes (Life-Threatening, Hospitalization)
  Sender: FDA-Public Use
  Company Number: DE-GLAXOSMITHKLINE-B0909767A

PATIENT
  Age: 78 Year
  Sex: 0
  Weight: 58 kg

DRUGS (6)
  1. TOPOTECAN [Suspect]
     Indication: OVARIAN CANCER RECURRENT
     Dosage: 2MG PER DAY
     Route: 042
     Dates: start: 20130708
  2. BLINDED TRIAL MEDICATION [Suspect]
     Indication: OVARIAN CANCER RECURRENT
     Route: 048
     Dates: start: 20130713
  3. PAROXETIN [Concomitant]
     Indication: DEPRESSION
     Dosage: 20MG PER DAY
     Route: 048
  4. TORASEMID [Concomitant]
     Indication: OEDEMA PERIPHERAL
     Dosage: 5MG PER DAY
     Route: 048
  5. BISOHEXAL [Concomitant]
     Indication: ARTERIAL DISORDER
     Dosage: 1.25MG PER DAY
     Route: 048
  6. TROMCARDIN [Concomitant]
     Indication: ARTERIAL DISORDER
     Route: 048

REACTIONS (3)
  - Leukopenia [Recovered/Resolved]
  - Diarrhoea [Recovered/Resolved]
  - Vomiting [Recovered/Resolved]
